FAERS Safety Report 7321401-8 (Version None)
Quarter: 2011Q1

REPORT INFORMATION
  Report Type: 
  Country: None (occurrence: None)
  Receive Date: 20110228
  Receipt Date: 20100517
  Transmission Date: 20110831
  Serious: No
  Sender: FDA-Public Use
  Company Number: US-PFIZER INC-2010062601

PATIENT
  Sex: Female
  Weight: 84 kg

DRUGS (3)
  1. GEODON [Suspect]
     Indication: BIPOLAR II DISORDER
     Dosage: 160 MG, 1X/DAY
     Route: 048
  2. CLONAZEPAM [Concomitant]
     Indication: ANXIETY
     Dosage: (1 MG IN THE LATE MORNING OR EARLY AFTERNOON AND 2 MG AT BED TIME), 2X/DAY
     Route: 048
  3. PROZAC [Concomitant]
     Indication: DEPRESSION
     Dosage: 160 MG, 1X/DAY (BED TIME)
     Route: 048

REACTIONS (2)
  - HAIR GROWTH ABNORMAL [None]
  - ALOPECIA [None]
